FAERS Safety Report 6908883-8 (Version None)
Quarter: 2010Q3

REPORT INFORMATION
  Report Type: 
  Country: None (occurrence: None)
  Receive Date: 20100719
  Receipt Date: 20091009
  Transmission Date: 20110219
  Serious: Yes (Other)
  Sender: FDA-Public Use
  Company Number: US-WYE-H11573309

PATIENT
  Age: 72 Year
  Sex: Female
  Weight: 53.57 kg

DRUGS (2)
  1. ADVIL LIQUI-GELS [Suspect]
     Indication: SURGERY
     Dosage: 2 TABLET 1X PER 1 DAY, ORAL; 1 TABLET 1X PER 1 DAY, ORAL
     Route: 048
     Dates: start: 20091004, end: 20091007
  2. ADVIL LIQUI-GELS [Suspect]
     Indication: SURGERY
     Dosage: 2 TABLET 1X PER 1 DAY, ORAL; 1 TABLET 1X PER 1 DAY, ORAL
     Route: 048
     Dates: start: 20091001

REACTIONS (3)
  - COELIAC DISEASE [None]
  - CONDITION AGGRAVATED [None]
  - MUSCULAR WEAKNESS [None]
